FAERS Safety Report 14310334 (Version 1)
Quarter: 2017Q4

REPORT INFORMATION
  Report Type: Spontaneous
  Country: US (occurrence: US)
  Receive Date: 20171220
  Receipt Date: 20171220
  Transmission Date: 20180321
  Serious: Yes (Death)
  Sender: FDA-Public Use
  Company Number: None

PATIENT
  Age: 61 Year
  Sex: Male

DRUGS (18)
  1. ACETAMIN [Concomitant]
     Active Substance: ACETAMINOPHEN
  2. GABAPENTIN. [Concomitant]
     Active Substance: GABAPENTIN
  3. LITHIUM. [Concomitant]
     Active Substance: LITHIUM
  4. MELATONIN [Concomitant]
     Active Substance: MELATONIN
  5. MILK OF MAGNESIA [Concomitant]
     Active Substance: MAGNESIUM HYDROXIDE
  6. QUETIAPINE. [Concomitant]
     Active Substance: QUETIAPINE
  7. MEKINIST [Suspect]
     Active Substance: TRAMETINIB DIMETHYL SULFOXIDE
     Indication: MALIGNANT MELANOMA
     Route: 048
     Dates: start: 20170527
  8. OMEPRAZOLE. [Concomitant]
     Active Substance: OMEPRAZOLE
  9. LACTULOSE. [Concomitant]
     Active Substance: LACTULOSE
  10. TESSALON [Concomitant]
     Active Substance: BENZONATATE
  11. VITAMIN D2 [Concomitant]
     Active Substance: ERGOCALCIFEROL
  12. BISACODYL. [Concomitant]
     Active Substance: BISACODYL
  13. ONDANSETRON [Concomitant]
     Active Substance: ONDANSETRON
  14. SENNALAX-S [Concomitant]
     Active Substance: DOCUSATE SODIUM\SENNOSIDES
  15. SODIUM CHLOR [Concomitant]
  16. CLEARLAX [Concomitant]
     Active Substance: POLYETHYLENE GLYCOL 3350
  17. FLEET ENEMA [Concomitant]
     Active Substance: SODIUM PHOSPHATE, DIBASIC\SODIUM PHOSPHATE, MONOBASIC
  18. TAFINLAR [Suspect]
     Active Substance: DABRAFENIB MESYLATE
     Indication: MALIGNANT MELANOMA
     Route: 048
     Dates: start: 20170527

REACTIONS (1)
  - Death [None]

NARRATIVE: CASE EVENT DATE: 20171218
